FAERS Safety Report 9031974 (Version 2)
Quarter: 2013Q4

REPORT INFORMATION
  Report Type: Spontaneous
  Country: US (occurrence: US)
  Receive Date: 20130125
  Receipt Date: 20131002
  Transmission Date: 20140711
  Serious: Yes (Death, Life-Threatening, Congenital Anomaly, Other)
  Sender: FDA-Public Use
  Company Number: US-PFIZER INC-2013030509

PATIENT
  Sex: Male

DRUGS (2)
  1. ZOLOFT [Suspect]
     Dosage: UNK
     Route: 064
  2. LEXAPRO [Suspect]
     Dosage: UNK
     Route: 064

REACTIONS (13)
  - Maternal exposure timing unspecified [Fatal]
  - Persistent foetal circulation [Fatal]
  - Exomphalos [Fatal]
  - Cytogenetic abnormality [Fatal]
  - Double outlet right ventricle [Fatal]
  - Transposition of the great vessels [Fatal]
  - Ventricular septal defect [Fatal]
  - Pulmonary valve stenosis [Fatal]
  - Atrial septal defect [Fatal]
  - Neural tube defect [Unknown]
  - Cleft lip and palate [Unknown]
  - Talipes [Unknown]
  - Neonatal aspiration [Unknown]
